FAERS Safety Report 9820210 (Version 1)
Quarter: 2013Q4

REPORT INFORMATION
  Report Type: Spontaneous
  Country: NL (occurrence: None)
  Receive Date: 20131024
  Receipt Date: 20131024
  Transmission Date: 20140711
  Serious: Yes (Hospitalization)
  Sender: FDA-Public Use
  Company Number: 2013-01598

PATIENT
  Age: 44 Year
  Sex: Male

DRUGS (6)
  1. QUETIAPINE [Suspect]
     Indication: ANXIETY
     Dosage: 50 MG, 1 IN 1 D, UNKNOWN
  2. APREPITANT [Suspect]
     Indication: ANTIEMETIC SUPPORTIVE CARE
     Dosage: 125 MG, 80 MG AND 80MG (3 DAY REGIMEN), UNKNOWN
  3. ONDANSETRON [Suspect]
  4. CISPLATIN [Concomitant]
  5. CITALOPRAM [Concomitant]
  6. DEXAMETHASONE [Concomitant]

REACTIONS (3)
  - Drug interaction [None]
  - Dehydration [None]
  - Somnolence [None]
